FAERS Safety Report 5151038-0 (Version None)
Quarter: 2006Q4

REPORT INFORMATION
  Report Type: 
  Country: None (occurrence: None)
  Receive Date: 20061114
  Receipt Date: 20061114
  Transmission Date: 20070319
  Serious: No
  Sender: FDA-Public Use
  Company Number: None

PATIENT
  Sex: Male
  Weight: 163.2949 kg

DRUGS (1)
  1. FENTANYL [Suspect]
     Indication: NEUROPATHY PERIPHERAL
     Dosage: 100MCG  EVERY 72 HOURS  TRANSDERMAL
     Route: 062
     Dates: start: 20061023

REACTIONS (3)
  - DRUG INEFFECTIVE [None]
  - INADEQUATE ANALGESIA [None]
  - PHARMACEUTICAL PRODUCT COMPLAINT [None]
